FAERS Safety Report 6060802-5 (Version None)
Quarter: 2009Q1

REPORT INFORMATION
  Report Type: 
  Country: None (occurrence: None)
  Receive Date: 20090202
  Receipt Date: 20090126
  Transmission Date: 20090719
  Serious: Yes (Death)
  Sender: FDA-Public Use
  Company Number: PHBS2009ES00624

PATIENT
  Age: 42 Year
  Sex: Female

DRUGS (6)
  1. IMATINIB MESYLATE [Suspect]
     Indication: PULMONARY ARTERIAL HYPERTENSION
     Dosage: 200 MG/DAY
  2. SILDENAFIL CITRATE [Concomitant]
     Dosage: 300 MG/DAY
  3. ILOPROST [Concomitant]
  4. TREPROSTINOL [Concomitant]
     Dosage: 22 NG/KG/MIN
     Dates: start: 20070201, end: 20070301
  5. EPOPROSTENOL [Suspect]
     Dosage: UNK
  6. EPOPROSTENOL [Suspect]
     Dosage: 52 NG/KG/MIN

REACTIONS (1)
  - RIGHT VENTRICULAR FAILURE [None]
